FAERS Safety Report 6337333-8 (Version None)
Quarter: 2009Q3

REPORT INFORMATION
  Report Type: 
  Country: None (occurrence: None)
  Receive Date: 20090828
  Receipt Date: 20090828
  Transmission Date: 20100115
  Serious: Yes (Hospitalization)
  Sender: FDA-Public Use
  Company Number: None

PATIENT
  Age: 16 Year
  Sex: Female
  Weight: 70.3075 kg

DRUGS (1)
  1. SKELAXIN [Suspect]
     Indication: BACK PAIN
     Dosage: AS NEEDED OR 1XDAY PO
     Route: 048
     Dates: start: 20090330, end: 20090402

REACTIONS (7)
  - DIZZINESS [None]
  - DYSSTASIA [None]
  - FEELING ABNORMAL [None]
  - FEELING HOT [None]
  - NAUSEA [None]
  - SPEECH DISORDER [None]
  - WHEELCHAIR USER [None]
